FAERS Safety Report 4319021-2 (Version None)
Quarter: 2004Q1

REPORT INFORMATION
  Report Type: 
  Country: None (occurrence: None)
  Receive Date: 20040316
  Receipt Date: 20040303
  Transmission Date: 20041129
  Serious: Yes (Other)
  Sender: FDA-Public Use
  Company Number: JP_040302728

PATIENT
  Age: 42 Year
  Sex: Male

DRUGS (1)
  1. HUMULIN R [Suspect]
     Indication: DIABETES MELLITUS

REACTIONS (7)
  - ARTHRALGIA [None]
  - COMPRESSION FRACTURE [None]
  - CONVULSION [None]
  - DEPRESSED LEVEL OF CONSCIOUSNESS [None]
  - HUMERUS FRACTURE [None]
  - HYPOGLYCAEMIA [None]
  - JOINT DISLOCATION [None]
